FAERS Safety Report 7026368-8 (Version None)
Quarter: 2010Q4

REPORT INFORMATION
  Report Type: 
  Country: None (occurrence: None)
  Receive Date: 20101004
  Receipt Date: 20100922
  Transmission Date: 20110411
  Serious: Yes (Hospitalization, Other)
  Sender: FDA-Public Use
  Company Number: TR-JNJFOC-20100305948

PATIENT
  Age: 24 Year
  Sex: Female

DRUGS (2)
  1. INVEGA [Suspect]
     Indication: SCHIZOPHRENIA
     Route: 048
  2. INVEGA [Suspect]
     Route: 048

REACTIONS (10)
  - AGITATION [None]
  - AKATHISIA [None]
  - BLOOD CREATINE PHOSPHOKINASE INCREASED [None]
  - CONFUSIONAL STATE [None]
  - HYPERTENSION [None]
  - INTENTIONAL OVERDOSE [None]
  - RESTLESSNESS [None]
  - SUICIDE ATTEMPT [None]
  - TACHYCARDIA [None]
  - VENTRICULAR EXTRASYSTOLES [None]
